FAERS Safety Report 13057699 (Version 1)
Quarter: 2016Q4

REPORT INFORMATION
  Report Type: Report from Study
  Country: US (occurrence: US)
  Receive Date: 20161223
  Receipt Date: 20161223
  Transmission Date: 20170207
  Serious: No
  Sender: FDA-Public Use
  Company Number: US-009507513-1611USA012540

PATIENT
  Age: 39 Year
  Sex: Male

DRUGS (1)
  1. BELSOMRA [Suspect]
     Active Substance: SUVOREXANT
     Dosage: UNK, UNKNOWN
     Route: 065

REACTIONS (2)
  - Sleep paralysis [Unknown]
  - Hallucination [Unknown]
